FAERS Safety Report 6943929-2 (Version None)
Quarter: 2010Q3

REPORT INFORMATION
  Report Type: 
  Country: None (occurrence: None)
  Receive Date: 20100826
  Receipt Date: 20100817
  Transmission Date: 20110219
  Serious: Yes (Life-Threatening)
  Sender: FDA-Public Use
  Company Number: B0671137A

PATIENT

DRUGS (1)
  1. HEPTODIN [Suspect]
     Dosage: .1G PER DAY
     Route: 048
     Dates: start: 20100701

REACTIONS (2)
  - BLOOD CREATINE PHOSPHOKINASE INCREASED [None]
  - MALAISE [None]
